FAERS Safety Report 13435715 (Version 2)
Quarter: 2017Q4

REPORT INFORMATION
  Report Type: Report from Study
  Country: US (occurrence: US)
  Receive Date: 20170413
  Receipt Date: 20171031
  Transmission Date: 20180320
  Serious: Yes (Other)
  Sender: FDA-Public Use
  Company Number: US-ROCHE-1910231

PATIENT
  Age: 58 Year
  Sex: Male
  Weight: 50.7 kg

DRUGS (2)
  1. OBINUTUZUMAB. [Suspect]
     Active Substance: OBINUTUZUMAB
     Indication: CHRONIC LYMPHOCYTIC LEUKAEMIA
     Dosage: DATE OF LAST DOSE PRIOR TO AE: 22/NOV/2016
     Route: 042
     Dates: start: 20161013
  2. IBRUTINIB [Suspect]
     Active Substance: IBRUTINIB
     Indication: CHRONIC LYMPHOCYTIC LEUKAEMIA
     Dosage: SCHEDULE: 3X140MG/DAY?DATE OF LAST DOSE PRIOR TO AE: 29/NOV/2016
     Route: 048
     Dates: start: 20161013

REACTIONS (3)
  - Meningitis cryptococcal [Recovered/Resolved]
  - Thrombocytopenia [Unknown]
  - Febrile neutropenia [Recovered/Resolved]

NARRATIVE: CASE EVENT DATE: 20161013
